FAERS Safety Report 19761304 (Version 1)
Quarter: 2021Q3

REPORT INFORMATION
  Report Type: Spontaneous
  Country: CN (occurrence: CN)
  Receive Date: 20210830
  Receipt Date: 20210830
  Transmission Date: 20211014
  Serious: Yes (Hospitalization)
  Sender: FDA-Public Use
  Company Number: CN-DRREDDYS-OTH/CHN/21/0139321

PATIENT
  Age: 58 Year
  Sex: Male
  Weight: 65 kg

DRUGS (2)
  1. PIPERACILLIN SODIUM AND SULBACTAM SODIUM FOR INJECTION (4: 1) [Suspect]
     Active Substance: PIPERACILLIN SODIUM\SULBACTAM SODIUM
     Indication: ANTIINFLAMMATORY THERAPY
     Dosage: 2.500000 G THREE TIMES DAILY
     Route: 041
     Dates: start: 20210707, end: 20210728
  2. OLANZAPINE. [Suspect]
     Active Substance: OLANZAPINE
     Indication: MENTAL DISORDER
     Dosage: 2.500000MG,QD
     Route: 045
     Dates: start: 20210720, end: 20210728

REACTIONS (3)
  - Incorrect route of product administration [Unknown]
  - Neutrophil count decreased [Recovering/Resolving]
  - White blood cell count decreased [Recovering/Resolving]

NARRATIVE: CASE EVENT DATE: 20210728
